FAERS Safety Report 20412496 (Version 1)
Quarter: 2022Q1

REPORT INFORMATION
  Report Type: Spontaneous
  Country: CN (occurrence: CN)
  Receive Date: 20220201
  Receipt Date: 20220201
  Transmission Date: 20220423
  Serious: Yes (Hospitalization, Other)
  Sender: FDA-Public Use
  Company Number: CN-009507513-2201CHN008766

PATIENT
  Age: 56 Year
  Sex: Male

DRUGS (3)
  1. KEYTRUDA [Suspect]
     Active Substance: PEMBROLIZUMAB
     Indication: Chemotherapeutic drug level therapeutic
     Dosage: DOSE: 200 MG, FREQUENCY: EVERY 3 WEEKS
     Route: 041
     Dates: start: 20210701, end: 20211223
  2. KEYTRUDA [Suspect]
     Active Substance: PEMBROLIZUMAB
     Indication: Colon cancer
  3. SODIUM CHLORIDE [Concomitant]
     Active Substance: SODIUM CHLORIDE
     Dosage: DOSE:100 ML, FREQUENCY: EVERY 3 WEEKS
     Route: 041
     Dates: start: 20210717, end: 20211223

REACTIONS (3)
  - Immune-mediated dermatitis [Recovered/Resolved]
  - Drug eruption [Recovered/Resolved]
  - Fatigue [Recovered/Resolved]

NARRATIVE: CASE EVENT DATE: 20220114
